FAERS Safety Report 14670087 (Version 1)
Quarter: 2018Q1

REPORT INFORMATION
  Report Type: Spontaneous
  Country: CA (occurrence: CA)
  Receive Date: 20180322
  Receipt Date: 20180322
  Transmission Date: 20180509
  Serious: Yes (Disabling)
  Sender: FDA-Public Use
  Company Number: CA-BAYER-2018-051719

PATIENT
  Age: 40 Year
  Sex: Female
  Weight: 97.5 kg

DRUGS (1)
  1. MIRENA [Suspect]
     Active Substance: LEVONORGESTREL
     Indication: CONTRACEPTION
     Dosage: 20 MCG/24HR, CONT
     Route: 015

REACTIONS (7)
  - Family stress [Recovering/Resolving]
  - Affect lability [Recovering/Resolving]
  - Headache [Recovering/Resolving]
  - Bipolar disorder [Recovering/Resolving]
  - Fatigue [Recovering/Resolving]
  - Asthenia [Recovering/Resolving]
  - Major depression [Recovering/Resolving]
